FAERS Safety Report 7780561-5 (Version None)
Quarter: 2011Q3

REPORT INFORMATION
  Report Type: 
  Country: None (occurrence: None)
  Receive Date: 20110927
  Receipt Date: 20110526
  Transmission Date: 20111222
  Serious: No
  Sender: FDA-Public Use
  Company Number: US-ASTRAZENECA-2011SE32984

PATIENT
  Age: 83 Year
  Sex: Female
  Weight: 77.1 kg

DRUGS (5)
  1. PRAVASTATIN [Concomitant]
     Indication: BLOOD CHOLESTEROL
  2. AMLODIPINE [Concomitant]
     Indication: CARDIAC DISORDER
  3. PROZAC [Concomitant]
     Indication: DEPRESSION
  4. SEROQUEL XR [Suspect]
     Indication: DEPRESSION
     Route: 048
  5. ATENOLOL [Concomitant]
     Indication: BLOOD PRESSURE

REACTIONS (1)
  - HERPES ZOSTER [None]
